FAERS Safety Report 17081980 (Version 1)
Quarter: 2019Q4

REPORT INFORMATION
  Report Type: Spontaneous
  Country: US (occurrence: US)
  Receive Date: 20191127
  Receipt Date: 20191127
  Transmission Date: 20200122
  Serious: No
  Sender: FDA-Public Use
  Company Number: US-PFIZER INC-2014361388

PATIENT
  Age: 55 Year
  Sex: Male
  Weight: 102 kg

DRUGS (2)
  1. VIAGRA [Suspect]
     Active Substance: SILDENAFIL CITRATE
     Indication: BLOOD PRESSURE ABNORMAL
     Dosage: 2 DF, DAILY (A PILL IN THE MORNING AND A PILL IN THE EVENING)
  2. VIAGRA [Suspect]
     Active Substance: SILDENAFIL CITRATE
     Dosage: 100 MG, 2X/DAY (IN THE MORNING AND IN THE EVENING)

REACTIONS (4)
  - Product use in unapproved indication [Unknown]
  - Visual impairment [Unknown]
  - Off label use [Unknown]
  - Overdose [Unknown]
